FAERS Safety Report 5459482-9 (Version None)
Quarter: 2007Q3

REPORT INFORMATION
  Report Type: 
  Country: None (occurrence: None)
  Receive Date: 20070919
  Receipt Date: 20070918
  Transmission Date: 20080115
  Serious: Yes (Hospitalization)
  Sender: FDA-Public Use
  Company Number: A0681554A

PATIENT
  Age: 64 Year
  Sex: Female
  Weight: 67.9 kg

DRUGS (5)
  1. LAPATINIB [Suspect]
     Indication: BREAST CANCER
     Dosage: 1250MG PER DAY
     Route: 048
     Dates: start: 20070821, end: 20070908
  2. DOCETAXEL [Suspect]
     Indication: BREAST CANCER
     Dosage: 160MG CYCLIC
     Route: 042
     Dates: start: 20070821
  3. DEXAMETHASONE 0.5MG TAB [Concomitant]
     Dosage: 4MG TWICE PER DAY
  4. NEULASTA [Concomitant]
     Route: 058
     Dates: end: 20070822
  5. LEVAQUIN [Concomitant]

REACTIONS (11)
  - ABDOMINAL DISCOMFORT [None]
  - ANOREXIA [None]
  - BONE PAIN [None]
  - DEHYDRATION [None]
  - DIARRHOEA [None]
  - MYALGIA [None]
  - NAUSEA [None]
  - PAIN [None]
  - PAIN IN EXTREMITY [None]
  - PYREXIA [None]
  - URINARY TRACT INFECTION [None]
